FAERS Safety Report 6356029-X (Version None)
Quarter: 2009Q3

REPORT INFORMATION
  Report Type: 
  Country: None (occurrence: None)
  Receive Date: 20090910
  Receipt Date: 20090910
  Transmission Date: 20100115
  Serious: Yes (Hospitalization)
  Sender: FDA-Public Use
  Company Number: None

PATIENT
  Age: 33 Year
  Sex: Male
  Weight: 67.1324 kg

DRUGS (3)
  1. TAXOTERE [Suspect]
     Indication: SARCOMA
     Dosage: 88MG/2700MG Q2 WEEKS IV
     Route: 042
     Dates: start: 20080606
  2. TAXOTERE [Suspect]
     Indication: SOFT TISSUE DISORDER
     Dosage: 88MG/2700MG Q2 WEEKS IV
     Route: 042
     Dates: start: 20080606
  3. AVASTIN [Suspect]
     Indication: SARCOMA
     Dosage: 340MG Q2 WEEKS IV
     Route: 042
     Dates: start: 20080606

REACTIONS (1)
  - HAEMOPTYSIS [None]
